FAERS Safety Report 8906183 (Version 1)
Quarter: 2012Q4

REPORT INFORMATION
  Report Type: Spontaneous
  Country: US (occurrence: None)
  Receive Date: 20121112
  Receipt Date: 20121112
  Transmission Date: 20130627
  Serious: Yes (Other)
  Sender: FDA-Public Use
  Company Number: None

PATIENT
  Age: 7 Year
  Sex: Male
  Weight: 31.3 kg

DRUGS (3)
  1. MONTELUKAST [Suspect]
     Indication: ALLERGY
     Route: 048
     Dates: start: 20120827, end: 20120828
  2. CLARITIN [Concomitant]
  3. FLOWVENT [Concomitant]

REACTIONS (4)
  - Throat irritation [None]
  - Vomiting [None]
  - Nausea [None]
  - Oral discomfort [None]
